FAERS Safety Report 17536727 (Version 1)
Quarter: 2020Q1

REPORT INFORMATION
  Report Type: Spontaneous
  Country: US (occurrence: US)
  Receive Date: 20200305
  Receipt Date: 20200305
  Transmission Date: 20200409
  Serious: Yes (Death)
  Sender: FDA-Public Use
  Company Number: None

PATIENT
  Sex: Male

DRUGS (4)
  1. TADALAFIL. [Concomitant]
     Active Substance: TADALAFIL
  2. MULTIVITAMIN ADLT [Concomitant]
  3. ESBRIET [Suspect]
     Active Substance: PIRFENIDONE
     Indication: IDIOPATHIC PULMONARY FIBROSIS
     Route: 048
     Dates: start: 20171219
  4. UPTRAVI [Concomitant]
     Active Substance: SELEXIPAG

REACTIONS (1)
  - Death [None]
